FAERS Safety Report 5920509-9 (Version None)
Quarter: 2008Q4

REPORT INFORMATION
  Report Type: 
  Country: None (occurrence: None)
  Receive Date: 20081016
  Receipt Date: 20081007
  Transmission Date: 20090506
  Serious: Yes (Death, Life-Threatening)
  Sender: FDA-Public Use
  Company Number: B0540536A

PATIENT
  Age: 73 Year
  Sex: Female

DRUGS (8)
  1. ZENTEL [Suspect]
     Indication: INFECTION PARASITIC
     Dosage: 800MG PER DAY
     Route: 048
     Dates: start: 20080903, end: 20080912
  2. BURINEX [Concomitant]
     Indication: DRUG USE FOR UNKNOWN INDICATION
     Route: 065
  3. AVLOCARDYL [Concomitant]
     Indication: DRUG USE FOR UNKNOWN INDICATION
     Route: 065
  4. ACARBOSE [Concomitant]
     Indication: DRUG USE FOR UNKNOWN INDICATION
     Route: 065
  5. DOLIPRANE [Concomitant]
     Indication: DRUG USE FOR UNKNOWN INDICATION
     Route: 065
  6. NOVOLOG MIX 70/30 [Concomitant]
     Indication: DRUG USE FOR UNKNOWN INDICATION
     Route: 065
  7. NOVORAPID [Concomitant]
     Indication: DRUG USE FOR UNKNOWN INDICATION
     Route: 065
  8. LOVENOX [Concomitant]
     Indication: DRUG USE FOR UNKNOWN INDICATION
     Route: 065

REACTIONS (3)
  - INFECTION [None]
  - PANCYTOPENIA [None]
  - PYREXIA [None]
